FAERS Safety Report 15824009 (Version 1)
Quarter: 2019Q1

REPORT INFORMATION
  Report Type: Spontaneous
  Country: None (occurrence: MM)
  Receive Date: 20190114
  Receipt Date: 20190114
  Transmission Date: 20190417
  Serious: Yes (Other)
  Sender: FDA-Public Use
  Company Number: MM-POPULATION COUNCIL, INC.-2061177

PATIENT
  Age: 33 Year
  Sex: Female
  Weight: 70 kg

DRUGS (1)
  1. JADELLE [Suspect]
     Active Substance: LEVONORGESTREL
     Route: 059
     Dates: start: 20161028, end: 20181224

REACTIONS (3)
  - Drug ineffective [None]
  - Pregnancy with implant contraceptive [None]
  - Uterine leiomyoma [None]

NARRATIVE: CASE EVENT DATE: 201811
